FAERS Safety Report 8186578 (Version 2)
Quarter: 2013Q4

REPORT INFORMATION
  Report Type: Report from Study
  Country: FR (occurrence: FR)
  Receive Date: 20111018
  Receipt Date: 20131004
  Transmission Date: 20140711
  Serious: Yes (Death, Other)
  Sender: FDA-Public Use
  Company Number: FR-ROCHE-1003546

PATIENT
  Age: 81 Year
  Sex: Male

DRUGS (16)
  1. RANIBIZUMAB [Suspect]
     Indication: AGE-RELATED MACULAR DEGENERATION
     Route: 050
     Dates: start: 20070925
  2. RANIBIZUMAB [Suspect]
     Indication: AGE-RELATED MACULAR DEGENERATION
     Route: 050
     Dates: start: 20080903
  3. RANIBIZUMAB [Suspect]
     Route: 050
     Dates: start: 20081013
  4. RANIBIZUMAB [Suspect]
     Route: 050
     Dates: start: 20081215
  5. RANIBIZUMAB [Suspect]
     Route: 050
     Dates: start: 20090216
  6. RANIBIZUMAB [Suspect]
     Route: 050
     Dates: start: 20090504
  7. RANIBIZUMAB [Suspect]
     Route: 050
     Dates: start: 20090824
  8. RANIBIZUMAB [Suspect]
     Route: 050
     Dates: start: 20091109
  9. RANIBIZUMAB [Suspect]
     Route: 050
     Dates: start: 20100222
  10. RANIBIZUMAB [Suspect]
     Route: 050
     Dates: start: 20100426
  11. RANIBIZUMAB [Suspect]
     Route: 050
     Dates: start: 20100712
  12. RANIBIZUMAB [Suspect]
     Route: 050
     Dates: start: 20100816
  13. FUROSEMIDE [Concomitant]
  14. URAPIDIL [Concomitant]
  15. REPAGLINIDE [Concomitant]
  16. NUTRITIONAL SUPPLEMENTS (NOS) [Concomitant]

REACTIONS (2)
  - Death [Fatal]
  - Diabetic retinopathy [Unknown]
